FAERS Safety Report 19268237 (Version 1)
Quarter: 2021Q2

REPORT INFORMATION
  Report Type: Spontaneous
  Country: US (occurrence: US)
  Receive Date: 20210518
  Receipt Date: 20210518
  Transmission Date: 20210717
  Serious: Yes (Death, Life-Threatening, Hospitalization, Other)
  Sender: FDA-Public Use
  Company Number: US-CELLTRION INC.-2021US006587

PATIENT

DRUGS (3)
  1. RITUXIMAB (UNKNOWN) [Suspect]
     Active Substance: RITUXIMAB
     Dosage: TOTAL OF TWO DOSES OF RITUXIMAB, ONE WEEK APART
  2. CAPLACIZUMAB [Suspect]
     Active Substance: CAPLACIZUMAB
  3. RITUXIMAB (UNKNOWN) [Suspect]
     Active Substance: RITUXIMAB
     Indication: THROMBOTIC THROMBOCYTOPENIC PURPURA
     Dosage: TOTAL OF TWO DOSES OF RITUXIMAB, ONE WEEK APART

REACTIONS (6)
  - Renal impairment [Unknown]
  - Enterobacter test positive [Fatal]
  - Herpes simplex [Fatal]
  - Pneumonia cytomegaloviral [Fatal]
  - Bronchoalveolar lavage [Unknown]
  - Condition aggravated [Unknown]
